FAERS Safety Report 21346382 (Version 1)
Quarter: 2022Q3

REPORT INFORMATION
  Report Type: Report from Study
  Country: US (occurrence: US)
  Receive Date: 20220917
  Receipt Date: 20220917
  Transmission Date: 20221027
  Serious: Yes (Hospitalization, Other)
  Sender: FDA-Public Use
  Company Number: US-TAKEDA-2022TUS065018

PATIENT
  Sex: Male

DRUGS (16)
  1. TEDUGLUTIDE [Suspect]
     Active Substance: TEDUGLUTIDE
     Indication: Short-bowel syndrome
     Dosage: 3.85 MILLIGRAM, QD
     Route: 042
     Dates: start: 20181102, end: 20181108
  2. TEDUGLUTIDE [Suspect]
     Active Substance: TEDUGLUTIDE
     Indication: Short-bowel syndrome
     Dosage: 3.85 MILLIGRAM, QD
     Route: 042
     Dates: start: 20181102, end: 20181108
  3. TEDUGLUTIDE [Suspect]
     Active Substance: TEDUGLUTIDE
     Indication: Short-bowel syndrome
     Dosage: 3.85 MILLIGRAM, QD
     Route: 042
     Dates: start: 20181102, end: 20181108
  4. TEDUGLUTIDE [Suspect]
     Active Substance: TEDUGLUTIDE
     Indication: Short-bowel syndrome
     Dosage: 3.85 MILLIGRAM, QD
     Route: 042
     Dates: start: 20181102, end: 20181108
  5. MORPHINE [Concomitant]
     Active Substance: MORPHINE
     Indication: Pain
     Dosage: 6 MILLILITER, QID
     Route: 048
     Dates: start: 20180729, end: 20181220
  6. CEFTRIAXONE [Concomitant]
     Active Substance: CEFTRIAXONE
     Indication: Sepsis
     Dosage: 1 GRAM
     Route: 030
     Dates: start: 20161017, end: 20181220
  7. CEFTRIAXONE [Concomitant]
     Active Substance: CEFTRIAXONE
     Indication: Infection
  8. URSODIOL [Concomitant]
     Active Substance: URSODIOL
     Dosage: 250 MILLIGRAM, BID
     Route: 048
     Dates: start: 20181111
  9. ATROPINE SULFATE\DIPHENOXYLATE HYDROCHLORIDE [Concomitant]
     Active Substance: ATROPINE SULFATE\DIPHENOXYLATE HYDROCHLORIDE
     Indication: Diarrhoea
     Dosage: 2.50 MILLIGRAM, QID
     Route: 048
     Dates: start: 20180725
  10. MINERALS\VITAMINS [Concomitant]
     Active Substance: MINERALS\VITAMINS
     Dosage: 1 DOSAGE FORM, QD
     Route: 048
     Dates: start: 20181114
  11. IMODIUM [Concomitant]
     Active Substance: LOPERAMIDE HYDROCHLORIDE
     Indication: Diarrhoea
     Dosage: 4 MILLIGRAM, QD
     Route: 048
     Dates: start: 20180319
  12. FLUTICASONE PROPIONATE [Concomitant]
     Active Substance: FLUTICASONE PROPIONATE
     Indication: Upper respiratory tract infection
     Dosage: 50 MICROGRAM, QD
     Route: 045
     Dates: start: 20151216, end: 20181220
  13. CALCIUM CARBONATE [Concomitant]
     Active Substance: CALCIUM CARBONATE
     Dosage: 500 MILLIGRAM
     Route: 048
     Dates: start: 20190109
  14. VITAMIN D3 [Concomitant]
     Active Substance: CHOLECALCIFEROL
     Dosage: 2000 INTERNATIONAL UNIT
     Route: 065
     Dates: start: 20130304
  15. HYDROXYZINE HYDROCHLORIDE [Concomitant]
     Active Substance: HYDROXYZINE HYDROCHLORIDE
     Dosage: 25 MILLIGRAM
     Route: 048
     Dates: start: 20171221
  16. LACTOBACILLUS RHAMNOSUS [Concomitant]
     Active Substance: LACTOBACILLUS RHAMNOSUS
     Dosage: 15 DOSAGE FORM
     Route: 065
     Dates: start: 20180715

REACTIONS (4)
  - Hyperkalaemia [Unknown]
  - Acute kidney injury [Unknown]
  - Cholecystitis acute [Unknown]
  - Abdominal pain [Unknown]
